FAERS Safety Report 11988793 (Version 3)
Quarter: 2021Q2

REPORT INFORMATION
  Report Type: Spontaneous
  Country: CA (occurrence: CA)
  Receive Date: 20160202
  Receipt Date: 20210526
  Transmission Date: 20210716
  Serious: Yes (Hospitalization, Other)
  Sender: FDA-Public Use
  Company Number: CA-GLAXOSMITHKLINE-CA2016GSK011252

PATIENT
  Age: 60 Year
  Sex: Male

DRUGS (18)
  1. BUPROPION. [Suspect]
     Active Substance: BUPROPION
     Indication: DEPRESSION
     Dosage: 350 MG, UNK
  2. LAMOTRIGINE. [Suspect]
     Active Substance: LAMOTRIGINE
     Indication: DEPRESSION
     Dosage: UNK
  3. ZOPICLONE [Suspect]
     Active Substance: ZOPICLONE
     Indication: MAJOR DEPRESSION
     Dosage: 15 MG
  4. ZOPICLONE [Suspect]
     Active Substance: ZOPICLONE
     Dosage: 7.5 MG
  5. NORTRIPTYLINE [Suspect]
     Active Substance: NORTRIPTYLINE
     Indication: DEPRESSION
     Dosage: 50 MG, UNK, FOR 3 MONTHS
  6. LITHIUM. [Suspect]
     Active Substance: LITHIUM
     Dosage: 1050 MG, UNK
  7. MIRTAZAPINE. [Suspect]
     Active Substance: MIRTAZAPINE
     Indication: DEPRESSION
     Dosage: 45 MG, UNK
  8. TEMAZEPAM. [Suspect]
     Active Substance: TEMAZEPAM
     Indication: PRODUCT USED FOR UNKNOWN INDICATION
     Dosage: UNK
  9. VENLAFAXINE [Suspect]
     Active Substance: VENLAFAXINE HYDROCHLORIDE
     Indication: DEPRESSION
     Dosage: 150 MG, UNK
  10. QUETIAPINE. [Suspect]
     Active Substance: QUETIAPINE
     Dosage: 300 MG
  11. QUETIAPINE. [Suspect]
     Active Substance: QUETIAPINE
     Dosage: 600 MG, DOSE INCREASED
  12. METHOTRIMEPRAZINE [Suspect]
     Active Substance: LEVOMEPROMAZINE
     Indication: DEPRESSION
     Dosage: 25 MG, UNK, FOR 3 MONTHS
  13. VENLAFAXINE [Suspect]
     Active Substance: VENLAFAXINE HYDROCHLORIDE
     Dosage: UNK, DOSE TAPERED
  14. LAMOTRIGINE. [Suspect]
     Active Substance: LAMOTRIGINE
     Dosage: 75 MG, UNK
  15. LITHIUM. [Suspect]
     Active Substance: LITHIUM
     Indication: DEPRESSION
     Dosage: 600 MG, UNK
  16. METHOTRIMEPRAZINE [Suspect]
     Active Substance: LEVOMEPROMAZINE
     Dosage: 50 MG
  17. FLURAZEPAM [Suspect]
     Active Substance: FLURAZEPAM HYDROCHLORIDE
     Indication: PRODUCT USED FOR UNKNOWN INDICATION
     Dosage: 15 MG
  18. QUETIAPINE. [Suspect]
     Active Substance: QUETIAPINE
     Indication: DEPRESSION
     Dosage: 200 MG, UNK

REACTIONS (15)
  - Restless legs syndrome [Unknown]
  - Psychomotor hyperactivity [Recovered/Resolved]
  - Major depression [Unknown]
  - Drug ineffective [Unknown]
  - Suicide attempt [Unknown]
  - Sleep disorder [Unknown]
  - Obsessive-compulsive disorder [Recovered/Resolved]
  - Feelings of worthlessness [Unknown]
  - Emotional distress [Recovered/Resolved]
  - Drug intolerance [Unknown]
  - Depression [Unknown]
  - Depressed mood [Recovered/Resolved]
  - Insomnia [Unknown]
  - Abulia [Unknown]
  - Decreased interest [Recovered/Resolved]
